FAERS Safety Report 20620964 (Version 2)
Quarter: 2022Q2

REPORT INFORMATION
  Report Type: Spontaneous
  Country: DE (occurrence: DE)
  Receive Date: 20220322
  Receipt Date: 20220503
  Transmission Date: 20220721
  Serious: Yes (Other)
  Sender: FDA-Public Use
  Company Number: DE-PFIZER INC-2021400283

PATIENT
  Age: 16 Day
  Sex: Male
  Weight: 4.1 kg

DRUGS (4)
  1. REVATIO [Suspect]
     Active Substance: SILDENAFIL CITRATE
     Indication: Newborn persistent pulmonary hypertension
     Dosage: 0.5 MG, SINGLE
     Route: 042
     Dates: start: 20210409, end: 20210409
  2. AMPICILLIN [Concomitant]
     Active Substance: AMPICILLIN
     Dosage: ^3 X 270 MG^
     Dates: start: 20210401, end: 20210408
  3. FLUCLOXACILLIN [Concomitant]
     Active Substance: FLUCLOXACILLIN
     Dosage: ^3 X 40 MG^
     Dates: start: 20210408
  4. CEFOTAXIME [Concomitant]
     Active Substance: CEFOTAXIME SODIUM
     Dosage: ^3 X 300^
     Dates: start: 20210408

REACTIONS (3)
  - Neonatal hypotension [Recovering/Resolving]
  - Persistent foetal circulation [Unknown]
  - Off label use [Unknown]

NARRATIVE: CASE EVENT DATE: 20210409
